FAERS Safety Report 21931563 (Version 4)
Quarter: 2024Q2

REPORT INFORMATION
  Report Type: Spontaneous
  Country: US (occurrence: US)
  Receive Date: 20230131
  Receipt Date: 20240403
  Transmission Date: 20240716
  Serious: No
  Sender: FDA-Public Use
  Company Number: US-SANOFI-01466445

PATIENT
  Age: 36 Year
  Sex: Female
  Weight: 92.971 kg

DRUGS (5)
  1. DUPIXENT [Suspect]
     Active Substance: DUPILUMAB
     Indication: Dermatitis atopic
     Dosage: 300 MG, QOW
     Route: 058
  2. ORIAHNN [Concomitant]
     Active Substance: ELAGOLIX SODIUM\ESTRADIOL\NORETHINDRONE
  3. CENTRUM [CYTIDINE;URIDINE] [Concomitant]
  4. ZYRTEC [Concomitant]
     Active Substance: CETIRIZINE HYDROCHLORIDE
  5. ALLEGRA ALLERGY [Concomitant]
     Active Substance: FEXOFENADINE HYDROCHLORIDE

REACTIONS (3)
  - Injection site pain [Unknown]
  - Rash [Recovered/Resolved]
  - Dermatitis atopic [Recovering/Resolving]
